FAERS Safety Report 7334877-7 (Version None)
Quarter: 2011Q1

REPORT INFORMATION
  Report Type: 
  Country: None (occurrence: None)
  Receive Date: 20110302
  Receipt Date: 20110302
  Transmission Date: 20110831
  Serious: Yes (Other)
  Sender: FDA-Public Use
  Company Number: None

PATIENT
  Age: 53 Year
  Sex: Female
  Weight: 122.0176 kg

DRUGS (1)
  1. PACLITAXEL [Suspect]
     Indication: LUNG NEOPLASM MALIGNANT
     Dosage: 385MG ONCE IV DRIP
     Route: 041

REACTIONS (5)
  - COUGH [None]
  - SKIN DISCOLOURATION [None]
  - ANXIETY [None]
  - DYSPNOEA [None]
  - BURNING SENSATION [None]
